FAERS Safety Report 5507090-3 (Version None)
Quarter: 2007Q4

REPORT INFORMATION
  Report Type: 
  Country: None (occurrence: None)
  Receive Date: 20071105
  Receipt Date: 20071031
  Transmission Date: 20080405
  Serious: Yes (Life-Threatening, Hospitalization)
  Sender: FDA-Public Use
  Company Number: JP-MERCK-0708USA01139

PATIENT
  Age: 78 Year
  Sex: Female
  Weight: 53 kg

DRUGS (9)
  1. STROMECTOL [Suspect]
     Indication: ACARODERMATITIS
     Route: 048
     Dates: start: 20070718, end: 20070718
  2. EURAX [Concomitant]
     Indication: PRURITUS
     Route: 061
     Dates: start: 20070718
  3. RISPERDAL [Concomitant]
     Indication: SCHIZOPHRENIA
     Route: 048
     Dates: start: 20061212
  4. VEGETAMIN A [Concomitant]
     Indication: SCHIZOPHRENIA
     Route: 048
     Dates: start: 20061212
  5. NICARDIPINE HYDROCHLORIDE [Concomitant]
     Indication: HYPERTENSION
     Route: 048
     Dates: start: 20061212
  6. TANATRIL [Concomitant]
     Indication: HYPERTENSION
     Route: 048
     Dates: start: 20061212
  7. LASIX [Concomitant]
     Indication: HYPERTENSION
     Route: 048
     Dates: start: 20061212
  8. SALOBEL [Concomitant]
     Indication: HYPERURICAEMIA
     Route: 048
     Dates: start: 20061212
  9. [THERAPY UNSPECIFIED] [Concomitant]
     Indication: HYPERURICAEMIA
     Route: 048
     Dates: start: 20061212

REACTIONS (2)
  - INCONTINENCE [None]
  - SHOCK [None]
